FAERS Safety Report 7892728-6 (Version None)
Quarter: 2011Q4

REPORT INFORMATION
  Report Type: 
  Country: None (occurrence: None)
  Receive Date: 20111104
  Receipt Date: 20111026
  Transmission Date: 20120403
  Serious: Yes (Hospitalization)
  Sender: FDA-Public Use
  Company Number: FR-EISAI INC-E3810-05049-SPO-FR

PATIENT
  Sex: Male

DRUGS (5)
  1. RABEPRAZOLE SODIUM [Suspect]
     Dates: start: 20111006
  2. FERROUS FUMARATE [Concomitant]
     Route: 048
     Dates: start: 20111005
  3. RABEPRAZOLE SODIUM [Suspect]
     Route: 048
  4. LEPTICUR [Suspect]
     Route: 048
  5. MIRTAZAPINE [Suspect]
     Indication: DEPRESSION
     Route: 048

REACTIONS (1)
  - HYPONATRAEMIA [None]
